FAERS Safety Report 5267654-1 (Version None)
Quarter: 2007Q1

REPORT INFORMATION
  Report Type: 
  Country: None (occurrence: None)
  Receive Date: 20070316
  Receipt Date: 20061130
  Transmission Date: 20070707
  Serious: Yes (Life-Threatening, Hospitalization)
  Sender: FDA-Public Use
  Company Number: NO-MERCK KGAA6028020

PATIENT
  Age: 69 Year
  Sex: Female

DRUGS (4)
  1. COZAAR [Suspect]
     Indication: HYPERTENSION
     Route: 048
  2. GLIMEPIRIDE [Concomitant]
     Indication: DIABETES MELLITUS NON-INSULIN-DEPENDENT
     Route: 048
  3. HYDROCHLOROTHIAZIDE [Concomitant]
     Indication: HYPERTENSION
     Route: 048
  4. METFORMIN [Suspect]
     Indication: DIABETES MELLITUS NON-INSULIN-DEPENDENT
     Route: 048

REACTIONS (11)
  - BLINDNESS [None]
  - CEREBELLAR INFARCTION [None]
  - CEREBRAL INFARCTION [None]
  - CIRCULATORY COLLAPSE [None]
  - DISSEMINATED INTRAVASCULAR COAGULATION [None]
  - GASTROENTERITIS [None]
  - HYPOTENSION [None]
  - LACTIC ACIDOSIS [None]
  - MULTI-ORGAN FAILURE [None]
  - RENAL FAILURE ACUTE [None]
  - RESPIRATORY FAILURE [None]
